FAERS Safety Report 9501254 (Version 5)
Quarter: 2014Q1

REPORT INFORMATION
  Report Type: Report from Study
  Country: FR (occurrence: FR)
  Receive Date: 20130905
  Receipt Date: 20140213
  Transmission Date: 20141002
  Serious: Yes (Death, Hospitalization)
  Sender: FDA-Public Use
  Company Number: FR-CELGENEUS-056-50794-13080266

PATIENT
  Age: 63 Year
  Sex: Male
  Weight: 67 kg

DRUGS (9)
  1. VIDAZA [Suspect]
     Indication: MYELODYSPLASTIC SYNDROME
     Route: 058
     Dates: start: 20130204
  2. VIDAZA [Suspect]
     Route: 058
     Dates: start: 20130617, end: 20130621
  3. VIDAZA [Suspect]
     Route: 058
     Dates: end: 20130715
  4. VIDAZA [Suspect]
     Dosage: 150 MILLIGRAM
     Route: 058
     Dates: start: 20130513, end: 20130517
  5. REVLIMID [Suspect]
     Indication: MYELODYSPLASTIC SYNDROME
     Route: 048
     Dates: start: 20130204
  6. REVLIMID [Suspect]
     Route: 048
     Dates: start: 20130617, end: 20130707
  7. REVLIMID [Suspect]
     Route: 048
     Dates: end: 20130715
  8. REVLIMID [Suspect]
     Dosage: 5 MILLIGRAM
     Route: 048
     Dates: start: 20130513
  9. AUGMENTIN [Concomitant]
     Indication: HYPERTHERMIA
     Route: 065

REACTIONS (6)
  - Myelodysplastic syndrome [Fatal]
  - Pancytopenia [Recovered/Resolved with Sequelae]
  - Hepatocellular injury [Not Recovered/Not Resolved]
  - Febrile bone marrow aplasia [Unknown]
  - Fall [Unknown]
  - Syncope [Recovered/Resolved with Sequelae]
